FAERS Safety Report 9556029 (Version 1)
Quarter: 2013Q3

REPORT INFORMATION
  Report Type: Spontaneous
  Country: IN (occurrence: None)
  Receive Date: 20130924
  Receipt Date: 20130924
  Transmission Date: 20140515
  Serious: Yes (Other)
  Sender: FDA-Public Use
  Company Number: AUR-APL-2013-07686

PATIENT
  Age: 41 Year
  Sex: Male

DRUGS (3)
  1. NEVIRAPINE [Suspect]
     Indication: HIV INFECTION
     Dates: start: 20111227
  2. LAMIVUDINE [Concomitant]
  3. ZIDOVUDINE (ZIDOVUDINE) [Concomitant]

REACTIONS (2)
  - Anaemia [None]
  - Drug reaction with eosinophilia and systemic symptoms [None]
